FAERS Safety Report 4826516-1 (Version None)
Quarter: 2005Q4

REPORT INFORMATION
  Report Type: 
  Country: None (occurrence: None)
  Receive Date: 20051111
  Receipt Date: 20050114
  Transmission Date: 20060501
  Serious: Yes (Death, Other)
  Sender: FDA-Public Use
  Company Number: JP-MERCK-0501USA02742

PATIENT
  Age: 48 Year
  Sex: Female
  Weight: 53 kg

DRUGS (5)
  1. ELSPAR [Suspect]
     Indication: ACUTE LYMPHOCYTIC LEUKAEMIA
     Route: 042
     Dates: start: 19901107, end: 19901113
  2. PIRARUBICIN [Concomitant]
     Indication: ACUTE LYMPHOCYTIC LEUKAEMIA
     Route: 065
     Dates: start: 19900101
  3. VINDESINE [Concomitant]
     Indication: ACUTE LYMPHOCYTIC LEUKAEMIA
     Route: 065
     Dates: start: 19900101
  4. CYCLOPHOSPHAMIDE [Concomitant]
     Indication: ACUTE LYMPHOCYTIC LEUKAEMIA
     Route: 065
     Dates: start: 19900101
  5. PREDNISOLONE [Concomitant]
     Indication: ACUTE LYMPHOCYTIC LEUKAEMIA
     Route: 065
     Dates: start: 19900101

REACTIONS (19)
  - ACTIVATED PARTIAL THROMBOPLASTIN TIME PROLONGED [None]
  - ANTITHROMBIN III DECREASED [None]
  - BLOOD FIBRINOGEN DECREASED [None]
  - CEREBRAL INFARCTION [None]
  - CLONIC CONVULSION [None]
  - COAGULATION FACTOR IX LEVEL DECREASED [None]
  - DEPRESSED LEVEL OF CONSCIOUSNESS [None]
  - EYELID OEDEMA [None]
  - FACE OEDEMA [None]
  - HEADACHE [None]
  - NAUSEA [None]
  - PAPILLOEDEMA [None]
  - PLASMIN INHIBITOR DECREASED [None]
  - PLASMINOGEN DECREASED [None]
  - PROTEIN S DECREASED [None]
  - PROTHROMBIN TIME PROLONGED [None]
  - RESPIRATORY ARREST [None]
  - SUPERIOR SAGITTAL SINUS THROMBOSIS [None]
  - VOMITING [None]
